FAERS Safety Report 15317962 (Version 24)
Quarter: 2022Q4

REPORT INFORMATION
  Report Type: Spontaneous
  Country: GB (occurrence: GB)
  Receive Date: 20180824
  Receipt Date: 20221226
  Transmission Date: 20230113
  Serious: Yes (Death, Hospitalization, Congenital Anomaly, Other)
  Sender: FDA-Public Use
  Company Number: PHHY2018GB074559

PATIENT
  Age: 3 Month
  Sex: Male

DRUGS (44)
  1. METFORMIN [Suspect]
     Active Substance: METFORMIN HYDROCHLORIDE
     Indication: Foetal exposure during pregnancy
     Dosage: UNK, (MATERNAL DOSE: UNKNOWN)
     Route: 064
  2. METFORMIN [Suspect]
     Active Substance: METFORMIN HYDROCHLORIDE
     Dosage: UNK, (MATERNAL DOSE: 400 MG, QD)
     Route: 064
  3. METFORMIN [Suspect]
     Active Substance: METFORMIN HYDROCHLORIDE
     Dosage: MATERNAL DOSE: 400 MG, QD
     Route: 064
     Dates: start: 20090101, end: 20100610
  4. METFORMIN [Suspect]
     Active Substance: METFORMIN HYDROCHLORIDE
     Dosage: UNK
     Route: 064
  5. EFAVIRENZ [Suspect]
     Active Substance: EFAVIRENZ
     Indication: Foetal exposure during pregnancy
     Dosage: (MATERNAL DOSE: UNKOWN)
     Route: 064
  6. EFAVIRENZ [Suspect]
     Active Substance: EFAVIRENZ
     Dosage: 1 UG/LITRE, QD (1 TABLET/CAPSULE)
     Route: 064
     Dates: start: 20171006
  7. EFAVIRENZ [Suspect]
     Active Substance: EFAVIRENZ
     Dosage: (MATERNAL DOSE:1 DOSAGE FORM, QD (1 TABLET/CAPSULE, DAILY)
     Route: 064
     Dates: start: 20180205
  8. EFAVIRENZ [Suspect]
     Active Substance: EFAVIRENZ
     Dosage: (MATERNAL DOSE: 1 DOSAGE FORM, QD)
     Route: 064
     Dates: start: 20181006
  9. EFAVIRENZ [Suspect]
     Active Substance: EFAVIRENZ
     Dosage: 1 UG/LITRE, QD (1 TABLET/CAPSULE)
     Route: 064
     Dates: start: 20171006, end: 20180205
  10. FOLIC ACID [Suspect]
     Active Substance: FOLIC ACID
     Indication: Foetal exposure during pregnancy
     Dosage: (MATERNAL DOSE: UNK)
     Route: 064
  11. FOLIC ACID [Suspect]
     Active Substance: FOLIC ACID
     Dosage: (MATERNAL DOSE: 1 DOSAGE FORM, QD)
     Route: 064
  12. LABETALOL [Suspect]
     Active Substance: LABETALOL\LABETALOL HYDROCHLORIDE
     Indication: Foetal exposure during pregnancy
     Dosage: UNK (MATERNAL DOSE: 300 MG)
     Route: 064
     Dates: start: 20090101, end: 20100610
  13. LABETALOL [Suspect]
     Active Substance: LABETALOL\LABETALOL HYDROCHLORIDE
     Dosage: MATERNAL DOSE: UNK
     Route: 064
  14. LABETALOL [Suspect]
     Active Substance: LABETALOL\LABETALOL HYDROCHLORIDE
     Dosage: MATERNAL DOSE: 300 MG
     Route: 064
     Dates: start: 20090101, end: 20100610
  15. TRUVADA [Suspect]
     Active Substance: EMTRICITABINE\TENOFOVIR DISOPROXIL FUMARATE
     Indication: Foetal exposure during pregnancy
     Dosage: MATERNAL DOSE: 1 DOSAGE FORM, QD
     Route: 064
  16. TRUVADA [Suspect]
     Active Substance: EMTRICITABINE\TENOFOVIR DISOPROXIL FUMARATE
     Dosage: MATERNAL DOSE: 1 DOSAGE FORM, QD
     Route: 064
     Dates: start: 20171006
  17. INSULIN ASPART [Suspect]
     Active Substance: INSULIN ASPART
     Indication: Foetal exposure during pregnancy
     Dosage: (MATERNAL DOSE: UNKNOWN)
     Route: 064
  18. EMTRICITABINE [Suspect]
     Active Substance: EMTRICITABINE
     Indication: Foetal exposure during pregnancy
     Dosage: (MATERNAL DOSE: 1 DOSAGE FORM, QD)
     Route: 064
     Dates: start: 20171006
  19. FOLATE SODIUM [Suspect]
     Active Substance: FOLATE SODIUM
     Indication: Foetal exposure during pregnancy
     Dosage: UNK (MATERNAL DOSE: UNKNOWN)
     Route: 062
  20. KALETRA [Suspect]
     Active Substance: LOPINAVIR\RITONAVIR
     Indication: Foetal exposure during pregnancy
     Dosage: MATERNAL DOSE: UNK, ON 10 JUN 2010
     Route: 064
  21. TENOFOVIR [Suspect]
     Active Substance: TENOFOVIR
     Indication: Foetal exposure during pregnancy
     Dosage: UNK, (MATERNAL DOSE 300 MG, QD), ON 10 JUN 2010
     Route: 064
  22. LAMIVUDINE [Suspect]
     Active Substance: LAMIVUDINE
     Indication: Foetal exposure during pregnancy
     Dosage: MATERNAL DOSE: 300 MG, ON 10 JAN 2009 TO 10 JUN 2010
     Route: 064
  23. ISENTRESS [Suspect]
     Active Substance: RALTEGRAVIR POTASSIUM
     Indication: Foetal exposure during pregnancy
     Dosage: 3200 MG, QD (800 MILLIGRAM, QID)
     Route: 064
     Dates: start: 20100610
  24. ISENTRESS [Suspect]
     Active Substance: RALTEGRAVIR POTASSIUM
     Indication: HIV infection
  25. LOPINAVIR\RITONAVIR [Suspect]
     Active Substance: LOPINAVIR\RITONAVIR
     Indication: Foetal exposure during pregnancy
     Dosage: (MATERNAL DOSE: UNK, QD), ON 10 JUN 2010 TO 10 JUN 2010
     Route: 064
  26. ZIDOVUDINE [Suspect]
     Active Substance: ZIDOVUDINE
     Indication: Foetal exposure during pregnancy
     Dosage: MATERNAL DOSE: 600 MG, QD, ON 10 JAN 2009 TO 10 JUN 2010
     Route: 064
  27. ZIDOVUDINE [Suspect]
     Active Substance: ZIDOVUDINE
     Dosage: (MATERNAL DOSE: 800 MG, QD), ON 10 JAN 2009 TO 10 JUN 2010
     Route: 064
  28. NEVIRAPINE [Suspect]
     Active Substance: NEVIRAPINE
     Indication: Foetal exposure during pregnancy
     Dosage: (MATERNAL DOSE:400 MG, QD), ON 01 JAN 2009 TO 10 JUN 2010
     Route: 064
  29. TENOFOVIR DISOPROXIL FUMARATE [Suspect]
     Active Substance: TENOFOVIR DISOPROXIL FUMARATE
     Indication: Foetal exposure during pregnancy
     Dosage: (MATERNAL DOSE: 1 DOSAGE FORM, QD), ON 10 JUN 2017
     Route: 064
  30. TENOFOVIR DISOPROXIL FUMARATE [Suspect]
     Active Substance: TENOFOVIR DISOPROXIL FUMARATE
     Dosage: (MATERNAL DOSE:1 DOSAGE FORM, QD (1 TABLET/CAPSULE, QD), ON 06 OCT 2017
     Route: 064
  31. VITAMIN B12 [Suspect]
     Active Substance: CYANOCOBALAMIN
     Indication: Foetal exposure during pregnancy
     Dosage: (MATERNAL DOSE: 800 MG, QD), ON 10 JAN 2009 TO 10 JUN 2010
     Route: 064
  32. VITAMIN B12 [Suspect]
     Active Substance: CYANOCOBALAMIN
     Indication: Supplementation therapy
  33. VITAMIN B12 [Suspect]
     Active Substance: CYANOCOBALAMIN
     Indication: Maternal exposure timing unspecified
  34. INSULIN ASPART [Suspect]
     Active Substance: INSULIN ASPART
     Indication: Foetal exposure during pregnancy
     Dosage: MATERNAL DOSE: UNK
     Route: 064
  35. FOLATE SODIUM [Suspect]
     Active Substance: FOLATE SODIUM
     Indication: Foetal exposure during pregnancy
     Dosage: UNK
     Route: 064
  36. FOLATE SODIUM [Suspect]
     Active Substance: FOLATE SODIUM
     Dosage: (MATERNAL DOSE: 1 DOSAGE FORM, QD (1 TABLET/CAPSULE, DAILY)
     Route: 064
  37. RITONAVIR [Suspect]
     Active Substance: RITONAVIR
     Indication: Foetal exposure during pregnancy
     Dosage: UNK, (MATERNAL DOSE: UNKNOWN), ON 10 JUN 2010
     Route: 064
  38. EFAVIRENZ [Suspect]
     Active Substance: EFAVIRENZ
     Indication: Foetal exposure during pregnancy
     Dosage: UNK, (MATERNAL DOSE: 1 DOSAGE FORM, QD, (1 TABLET/CAPSULE, DAILY))
     Route: 064
  39. EFAVIRENZ [Suspect]
     Active Substance: EFAVIRENZ
     Dosage: 1 DOSAGE FORM, QD (1 TABLET/CAPSULE, DAILY), ON 06 OCT 2017
     Route: 064
  40. LOPINAVIR [Suspect]
     Active Substance: LOPINAVIR
     Indication: Foetal exposure during pregnancy
     Dosage: MATERNAL DOSE: UNK, ON 10 JUN 2010
     Route: 064
  41. CYANOCOBALAMIN [Suspect]
     Active Substance: CYANOCOBALAMIN
     Indication: Foetal exposure during pregnancy
     Dosage: (MATERNAL DOSE: UNKNOWN)
     Route: 064
  42. CYANOCOBALAMIN [Suspect]
     Active Substance: CYANOCOBALAMIN
     Indication: Product used for unknown indication
     Dosage: (MATERNAL DOSE: 800 MG, QD) FROM 10 JAN 2009 TO 10 JUN 2010
     Route: 064
  43. LOPINAVIR\RITONAVIR [Suspect]
     Active Substance: LOPINAVIR\RITONAVIR
     Indication: Foetal exposure during pregnancy
     Dosage: UNK
     Route: 064
     Dates: start: 20100610
  44. COBAMAMIDE [Suspect]
     Active Substance: COBAMAMIDE
     Indication: Foetal exposure during pregnancy
     Dosage: UNK (MATERNAL DOSE: UNK)
     Route: 065

REACTIONS (5)
  - Hydrops foetalis [Fatal]
  - Trisomy 18 [Fatal]
  - Cleft lip and palate [Fatal]
  - Ultrasound antenatal screen [Fatal]
  - Foetal exposure during pregnancy [Fatal]

NARRATIVE: CASE EVENT DATE: 20171006
